FAERS Safety Report 26095665 (Version 1)
Quarter: 2025Q4

REPORT INFORMATION
  Report Type: Spontaneous
  Country: US (occurrence: US)
  Receive Date: 20251127
  Receipt Date: 20251127
  Transmission Date: 20260118
  Serious: No
  Sender: BIOCON
  Company Number: US-BIOCON-BCN-2025-000366

PATIENT

DRUGS (4)
  1. ATORVASTATIN [Suspect]
     Active Substance: ATORVASTATIN
     Indication: Product used for unknown indication
     Dosage: ATORVASTATIN DOSES OF 10, 20 AND 40 MG FOR A PERIOD OF AT LEAST 5 YEARS
     Dates: start: 2021
  2. ATORVASTATIN [Suspect]
     Active Substance: ATORVASTATIN
     Dosage: ATORVASTATIN DOSES OF 10, 20 AND 40 MG FOR A PERIOD OF AT LEAST 5 YEARS
  3. ATORVASTATIN [Suspect]
     Active Substance: ATORVASTATIN
     Dosage: ATORVASTATIN DOSES OF 10, 20 AND 40 MG FOR A PERIOD OF AT LEAST 5 YEARS
     Dates: end: 20250620
  4. ATORVASTATIN [Suspect]
     Active Substance: ATORVASTATIN
     Dosage: THE PRESCRIPTION WAS FILLED ON 19-MAY-2025 AT THE PHARMACY BUT STARTED TAKING THE FIRST DOSE OF 80 M
     Dates: start: 20250620

REACTIONS (2)
  - Therapeutic response decreased [Unknown]
  - Product substitution issue [Unknown]
